FAERS Safety Report 6206417-7 (Version None)
Quarter: 2009Q2

REPORT INFORMATION
  Report Type: 
  Country: None (occurrence: None)
  Receive Date: 20090528
  Receipt Date: 20090526
  Transmission Date: 20091009
  Serious: Yes (Hospitalization, Other)
  Sender: FDA-Public Use
  Company Number: AU-ROXANE LABORATORIES, INC.-2009-RO-00520RO

PATIENT
  Age: 25 Year
  Sex: Female

DRUGS (10)
  1. LAMOTRIGINE [Suspect]
     Dosage: 25MG
  2. LAMOTRIGINE [Suspect]
  3. AMOXICILLIN [Suspect]
     Indication: SINUSITIS
  4. PHENYTOIN [Suspect]
  5. RABEPRAZOLE SODIUM [Suspect]
  6. LEVONORGESTREL + ETHINYL ESTRADIOL [Suspect]
  7. CEFTRIAXONE [Concomitant]
     Indication: MENINGITIS ASEPTIC
     Dosage: 4G
  8. CEFTRIAXONE [Concomitant]
  9. VANCOMYCIN [Concomitant]
     Indication: MENINGITIS ASEPTIC
  10. AMPICILLIN [Concomitant]
     Indication: MENINGITIS ASEPTIC

REACTIONS (3)
  - MENINGITIS ASEPTIC [None]
  - SJOGREN'S SYNDROME [None]
  - VITH NERVE PARALYSIS [None]
